FAERS Safety Report 8538796-X (Version None)
Quarter: 2012Q2

REPORT INFORMATION
  Report Type: 
  Country: None (occurrence: None)
  Receive Date: 20120416
  Receipt Date: 20091218
  Transmission Date: 20120825
  Serious: Yes (Other)
  Sender: FDA-Public Use
  Company Number: PHHY2009US57116

PATIENT
  Sex: Male

DRUGS (6)
  1. DIOVAN [Suspect]
     Dosage: 80 MG
  2. SULAR [Concomitant]
  3. LOVASTATIN [Concomitant]
  4. ZEMPLAR [Concomitant]
  5. NEPHROCAPS (FOLIC ACID, VITAMINS NOS) [Concomitant]
  6. ALLOPURINOL [Concomitant]

REACTIONS (1)
  - BLOOD PRESSURE INCREASED [None]
